FAERS Safety Report 5802847-3 (Version None)
Quarter: 2008Q3

REPORT INFORMATION
  Report Type: 
  Country: None (occurrence: None)
  Receive Date: 20080703
  Receipt Date: 20080625
  Transmission Date: 20090109
  Serious: Yes (Hospitalization)
  Sender: FDA-Public Use
  Company Number: 2008SP008328

PATIENT
  Age: 59 Year
  Sex: Female
  Weight: 49 kg

DRUGS (8)
  1. PEG-INTRON [Suspect]
     Indication: MALIGNANT MELANOMA STAGE IV
     Dosage: 147 MCG; QD; SC
     Route: 058
     Dates: start: 20080414, end: 20080427
  2. SORAFENIB (SORAFENIB) [Suspect]
     Indication: MALIGNANT MELANOMA STAGE IV
     Dosage: 800 MG; QD; PO
     Route: 048
     Dates: start: 20080414, end: 20080427
  3. IBUPROFEN [Concomitant]
  4. RINGER, GLUCOSE [Concomitant]
  5. NOVAMINSULFON [Concomitant]
  6. TRAMAL [Concomitant]
  7. AVELOX [Concomitant]
  8. VITAMIN B COMPLEX CAP [Concomitant]

REACTIONS (19)
  - ABDOMINAL PAIN [None]
  - ALANINE AMINOTRANSFERASE INCREASED [None]
  - ASPARTATE AMINOTRANSFERASE INCREASED [None]
  - BLOOD ALBUMIN DECREASED [None]
  - BLOOD CALCIUM DECREASED [None]
  - BLOOD SODIUM DECREASED [None]
  - C-REACTIVE PROTEIN INCREASED [None]
  - CHILLS [None]
  - COUGH [None]
  - EOSINOPHIL PERCENTAGE DECREASED [None]
  - GENERAL PHYSICAL HEALTH DETERIORATION [None]
  - LYMPHOCYTE PERCENTAGE DECREASED [None]
  - MALAISE [None]
  - NIGHT SWEATS [None]
  - PLATELET COUNT DECREASED [None]
  - PNEUMONIA [None]
  - PROTEIN TOTAL DECREASED [None]
  - PYREXIA [None]
  - WHITE BLOOD CELL COUNT DECREASED [None]
